FAERS Safety Report 7518083-9 (Version None)
Quarter: 2011Q2

REPORT INFORMATION
  Report Type: 
  Country: None (occurrence: None)
  Receive Date: 20110531
  Receipt Date: 20110531
  Transmission Date: 20111010
  Serious: No
  Sender: FDA-Public Use
  Company Number: None

PATIENT
  Sex: Male
  Weight: 88.5 kg

DRUGS (2)
  1. CIPROFLOXACIN [Suspect]
     Indication: PREOPERATIVE CARE
     Dosage: 400MG X 1 DOSE IV BOLUS
     Route: 040
     Dates: start: 20110525, end: 20110525
  2. CIPROFLOXACIN [Suspect]
     Indication: PROPHYLAXIS
     Dosage: 400MG X 1 DOSE IV BOLUS
     Route: 040
     Dates: start: 20110525, end: 20110525

REACTIONS (2)
  - INFUSION SITE ERYTHEMA [None]
  - INJECTION SITE PRURITUS [None]
